FAERS Safety Report 8939952 (Version 1)
Quarter: 2012Q4

REPORT INFORMATION
  Report Type: Report from Study
  Country: HU (occurrence: HU)
  Receive Date: 20121203
  Receipt Date: 20121203
  Transmission Date: 20130627
  Serious: Yes (Death, Hospitalization)
  Sender: FDA-Public Use
  Company Number: HU-MERCK-1211HUN012423

PATIENT
  Age: 47 Year
  Sex: Male
  Weight: 70 kg

DRUGS (4)
  1. TEMOZOLOMIDE [Suspect]
     Indication: GLIOBLASTOMA
     Dosage: 200 mg/m2, 5 day
     Route: 048
     Dates: start: 20100901
  2. AVASTIN (BEVACIZUMAB) [Suspect]
     Indication: GLIOBLASTOMA
     Dosage: UNK
     Route: 042
     Dates: start: 20100901
  3. AVASTIN (BEVACIZUMAB) [Suspect]
     Dosage: UNK
     Route: 042
     Dates: start: 20100901
  4. METHYLPREDNISOLONE [Concomitant]
     Dosage: 8 mg, qd
     Dates: start: 20100901

REACTIONS (1)
  - Brain oedema [Fatal]
